FAERS Safety Report 20617718 (Version 1)
Quarter: 2022Q1

REPORT INFORMATION
  Report Type: Report from Study
  Country: US (occurrence: None)
  Receive Date: 20220321
  Receipt Date: 20220321
  Transmission Date: 20220423
  Serious: Yes (Hospitalization, Other)
  Sender: FDA-Public Use
  Company Number: US-ROCHE-2933877

PATIENT
  Age: 58 Year
  Sex: Male
  Weight: 88.95 kg

DRUGS (3)
  1. ATEZOLIZUMAB [Suspect]
     Active Substance: ATEZOLIZUMAB
     Indication: Small cell lung cancer
     Dosage: LAST ADMINISTRATION DATE: 01/JUL/2021
     Route: 041
     Dates: start: 20210421
  2. CARBOPLATIN [Suspect]
     Active Substance: CARBOPLATIN
     Indication: Small cell lung cancer
     Dosage: LAST ADMINISTRATION DATE: 01/JUL/2021
     Route: 042
     Dates: start: 20210421
  3. ETOPOSIDE [Suspect]
     Active Substance: ETOPOSIDE
     Indication: Small cell lung cancer
     Dosage: ON 23/APR/2021, MOST RECENT DOSE WAS ADMINISTERED?LAST ADMINISTRATION DATE: 01/JUL/2021
     Route: 042
     Dates: start: 20210421

REACTIONS (2)
  - Encephalopathy [Recovered/Resolved]
  - Peripheral ischaemia [Unknown]

NARRATIVE: CASE EVENT DATE: 20210507
